FAERS Safety Report 5241536-3 (Version None)
Quarter: 2007Q1

REPORT INFORMATION
  Report Type: 
  Country: None (occurrence: None)
  Receive Date: 20070220
  Receipt Date: 20070219
  Transmission Date: 20070707
  Serious: Yes (Hospitalization)
  Sender: FDA-Public Use
  Company Number: FR-GLAXOSMITHKLINE-B0458849A

PATIENT
  Age: 47 Year
  Sex: Male

DRUGS (1)
  1. CLAMOXYL [Suspect]
     Dosage: 2G SINGLE DOSE
     Route: 048
     Dates: start: 20060605, end: 20060605

REACTIONS (3)
  - ANGIOEDEMA [None]
  - RESPIRATORY DISORDER [None]
  - URTICARIA [None]
